FAERS Safety Report 8030444-0 (Version None)
Quarter: 2012Q1

REPORT INFORMATION
  Report Type: 
  Country: None (occurrence: None)
  Receive Date: 20120109
  Receipt Date: 20120105
  Transmission Date: 20120608
  Serious: Yes (Hospitalization)
  Sender: FDA-Public Use
  Company Number: PHHY2012JP001148

PATIENT
  Age: 75 Year
  Sex: Male
  Weight: 86 kg

DRUGS (6)
  1. GASLON [Concomitant]
     Route: 048
  2. ETODOLAC [Concomitant]
     Route: 048
  3. OPALMON [Concomitant]
  4. AMLODIPINE [Concomitant]
     Route: 048
  5. CASODEX [Concomitant]
     Route: 048
  6. ZOMETA [Suspect]
     Indication: METASTASES TO BONE
     Dosage: 4 MG, UNK
     Route: 041
     Dates: start: 20060101, end: 20110601

REACTIONS (2)
  - OSTEONECROSIS OF JAW [None]
  - INFECTION [None]
